FAERS Safety Report 9269878 (Version 1)
Quarter: 2013Q2

REPORT INFORMATION
  Report Type: Spontaneous
  Country: DE (occurrence: CA)
  Receive Date: 20130503
  Receipt Date: 20130503
  Transmission Date: 20140414
  Serious: Yes (Other)
  Sender: FDA-Public Use
  Company Number: CA-FRI-1000044916

PATIENT
  Sex: Male

DRUGS (1)
  1. ROFLUMILAST [Suspect]

REACTIONS (1)
  - Dyspnoea [Unknown]
